FAERS Safety Report 4373792-8 (Version None)
Quarter: 2004Q2

REPORT INFORMATION
  Report Type: 
  Country: None (occurrence: None)
  Receive Date: 20040604
  Receipt Date: 20030929
  Transmission Date: 20050107
  Serious: Yes (Hospitalization)
  Sender: FDA-Public Use
  Company Number: 2003170741US

PATIENT
  Age: 62 Year
  Sex: Female
  Weight: 61 kg

DRUGS (2)
  1. ESTRING [Suspect]
     Indication: VAGINAL DISORDER
     Dosage: CYCLIC, VAGINAL
     Route: 067
     Dates: start: 20020301
  2. EVISTA [Concomitant]

REACTIONS (1)
  - VAGINAL ULCERATION [None]
